FAERS Safety Report 17174611 (Version 2)
Quarter: 2019Q4

REPORT INFORMATION
  Report Type: Spontaneous
  Country: EG (occurrence: EG)
  Receive Date: 20191219
  Receipt Date: 20191227
  Transmission Date: 20200122
  Serious: Yes (Death, Hospitalization, Other)
  Sender: FDA-Public Use
  Company Number: EG-ASTRAZENECA-2019SF81114

PATIENT
  Age: 45 Year
  Sex: Male

DRUGS (1)
  1. OSIMERTINIB. [Suspect]
     Active Substance: OSIMERTINIB
     Route: 048
     Dates: start: 201902

REACTIONS (4)
  - Normal pressure hydrocephalus [Unknown]
  - Subarachnoid haemorrhage [Unknown]
  - Death [Fatal]
  - Altered state of consciousness [Unknown]
